FAERS Safety Report 4342424-7 (Version None)
Quarter: 2004Q2

REPORT INFORMATION
  Report Type: 
  Country: None (occurrence: None)
  Receive Date: 20040420
  Receipt Date: 20040420
  Transmission Date: 20050107
  Serious: Yes (Life-Threatening)
  Sender: FDA-Public Use
  Company Number: None

PATIENT
  Age: 61 Year
  Sex: Male

DRUGS (9)
  1. WARFARIN SODIUM [Suspect]
     Indication: ATRIAL FIBRILLATION
     Dosage: AS DIRECTED
  2. DIGITEK [Concomitant]
  3. ACTOS [Concomitant]
  4. ATENOLOL [Concomitant]
  5. MONOPRIL [Concomitant]
  6. TRICOR [Concomitant]
  7. STARLIX [Concomitant]
  8. GLUCOPHAGE [Concomitant]
  9. CRESTOR [Concomitant]

REACTIONS (4)
  - BLINDNESS UNILATERAL [None]
  - BLOOD DISORDER [None]
  - CEREBROVASCULAR ACCIDENT [None]
  - EYE PAIN [None]
